FAERS Safety Report 23666162 (Version 1)
Quarter: 2024Q1

REPORT INFORMATION
  Report Type: Spontaneous
  Country: ET (occurrence: ET)
  Receive Date: 20240324
  Receipt Date: 20240324
  Transmission Date: 20240410
  Serious: Yes (Hospitalization)
  Sender: FDA-Public Use
  Company Number: ET-STRIDES ARCOLAB LIMITED-2024SP003263

PATIENT
  Age: 4 Year
  Sex: Male

DRUGS (3)
  1. VANCOMYCIN [Suspect]
     Active Substance: VANCOMYCIN
     Indication: Bacterial sepsis
     Dosage: UNK
     Route: 065
  2. CEFTAZIDIME [Concomitant]
     Active Substance: CEFTAZIDIME
     Indication: Bacterial sepsis
     Dosage: UNK
     Route: 065
  3. ARTESUNATE [Concomitant]
     Active Substance: ARTESUNATE
     Indication: Complicated malaria
     Dosage: UNK
     Route: 065

REACTIONS (2)
  - Renal disorder [Recovered/Resolved]
  - Off label use [Unknown]
